FAERS Safety Report 7902279-8 (Version None)
Quarter: 2011Q4

REPORT INFORMATION
  Report Type: 
  Country: None (occurrence: None)
  Receive Date: 20111108
  Receipt Date: 20111101
  Transmission Date: 20120403
  Serious: Yes (Other)
  Sender: FDA-Public Use
  Company Number: BR-PFIZER INC-2011258711

PATIENT
  Age: 33 Year
  Sex: Female

DRUGS (3)
  1. VARENICLINE TARTRATE [Suspect]
     Dosage: UNK, 2X/DAY
     Route: 048
     Dates: start: 20110101, end: 20111023
  2. SYNTHROID [Concomitant]
     Indication: HYPOTHYROIDISM
     Dosage: UNK
     Dates: start: 19890101
  3. VARENICLINE TARTRATE [Suspect]
     Indication: SMOKING CESSATION THERAPY
     Dosage: UNK
     Route: 048
     Dates: start: 20110926, end: 20110101

REACTIONS (6)
  - ARTHROPOD BITE [None]
  - HEAT RASH [None]
  - RASH [None]
  - HELMINTHIC INFECTION [None]
  - HYPERSENSITIVITY [None]
  - PRURITUS [None]
